FAERS Safety Report 4578128-5 (Version None)
Quarter: 2005Q1

REPORT INFORMATION
  Report Type: 
  Country: None (occurrence: None)
  Receive Date: 20050209
  Receipt Date: 20050125
  Transmission Date: 20050727
  Serious: Yes (Hospitalization)
  Sender: FDA-Public Use
  Company Number: 202772

PATIENT
  Age: 35 Year
  Sex: Female

DRUGS (7)
  1. AVONEX [Suspect]
     Indication: MULTIPLE SCLEROSIS
     Dosage: 30 UG QW IM
     Route: 030
     Dates: start: 19990101, end: 20030101
  2. AVONEX [Suspect]
     Indication: MULTIPLE SCLEROSIS
     Dosage: 30 UG QW IM
     Route: 030
     Dates: start: 20040721, end: 20040804
  3. AVONEX [Suspect]
     Indication: MULTIPLE SCLEROSIS
     Dosage: 30 UG QW IM
     Route: 030
     Dates: start: 20030101, end: 20040714
  4. TRANSTEC [Concomitant]
  5. VOLTAREN [Concomitant]
  6. VIGIL [Concomitant]
  7. TEMGESIC [Concomitant]

REACTIONS (7)
  - FATIGUE [None]
  - INJECTION SITE RASH [None]
  - MEDICATION ERROR [None]
  - MOBILITY DECREASED [None]
  - PAIN IN EXTREMITY [None]
  - PHLEBOTHROMBOSIS [None]
  - PULMONARY EMBOLISM [None]
